FAERS Safety Report 7098400-7 (Version None)
Quarter: 2010Q4

REPORT INFORMATION
  Report Type: 
  Country: None (occurrence: None)
  Receive Date: 20101112
  Receipt Date: 20101103
  Transmission Date: 20110411
  Serious: Yes (Hospitalization)
  Sender: FDA-Public Use
  Company Number: JP-ASTRAZENECA-2010SE52510

PATIENT
  Age: 66 Year
  Sex: Male

DRUGS (3)
  1. KENZEN [Suspect]
     Indication: HYPERTENSION
     Route: 048
     Dates: start: 20100607, end: 20100822
  2. AMLOR [Concomitant]
     Indication: HYPERTENSION
     Route: 048
     Dates: end: 20100607
  3. AMLOR [Concomitant]
     Route: 048
     Dates: start: 20100801

REACTIONS (1)
  - HYPERTENSION [None]
